FAERS Safety Report 16303009 (Version 3)
Quarter: 2020Q1

REPORT INFORMATION
  Report Type: Spontaneous
  Country: US (occurrence: US)
  Receive Date: 20190513
  Receipt Date: 20200107
  Transmission Date: 20200409
  Serious: No
  Sender: FDA-Public Use
  Company Number: US-ELI_LILLY_AND_COMPANY-US201905004074

PATIENT
  Age: 67 Year
  Sex: Male

DRUGS (6)
  1. NOVOLIN R [Concomitant]
     Active Substance: INSULIN HUMAN
     Indication: TYPE 2 DIABETES MELLITUS
  2. NOVOLIN N [Concomitant]
     Active Substance: INSULIN HUMAN
     Indication: TYPE 2 DIABETES MELLITUS
  3. TRULICITY [Suspect]
     Active Substance: DULAGLUTIDE
     Indication: TYPE 2 DIABETES MELLITUS
     Dosage: 0.75 MG, WEEKLY (1/W) (1.5)
     Route: 058
     Dates: start: 20190417
  4. TRULICITY [Suspect]
     Active Substance: DULAGLUTIDE
     Dosage: 0.75 MG, WEEKLY (1/W) (1.5)
     Route: 058
     Dates: start: 20190417
  5. PRANDIN [REPAGLINIDE] [Concomitant]
     Indication: TYPE 2 DIABETES MELLITUS
     Dosage: 4 MG, TID
  6. TAMSULOSIN [Concomitant]
     Active Substance: TAMSULOSIN
     Indication: DYSURIA
     Dosage: 0.8 MG, EACH EVENING (BEDTIME)

REACTIONS (3)
  - Dysuria [Unknown]
  - Visual impairment [Unknown]
  - Blood glucose increased [Recovering/Resolving]
